FAERS Safety Report 10792282 (Version 1)
Quarter: 2015Q1

REPORT INFORMATION
  Report Type: Spontaneous
  Country: US (occurrence: US)
  Receive Date: 20150213
  Receipt Date: 20150213
  Transmission Date: 20150721
  Serious: No
  Sender: FDA-Public Use
  Company Number: US-GLAXOSMITHKLINE-A1074297A

PATIENT

DRUGS (2)
  1. NICOTINE PATCH UNKNOWN BRAND TRANSDERMAL PATCH [Suspect]
     Active Substance: NICOTINE
     Indication: EX-TOBACCO USER
  2. NICODERM CQ [Suspect]
     Active Substance: NICOTINE
     Indication: EX-TOBACCO USER
     Dates: start: 2013

REACTIONS (5)
  - Application site pruritus [Unknown]
  - Application site pain [Unknown]
  - Application site erythema [Recovered/Resolved]
  - Application site urticaria [Recovered/Resolved]
  - Application site reaction [Unknown]
